FAERS Safety Report 8573843-0 (Version None)
Quarter: 2012Q3

REPORT INFORMATION
  Report Type: 
  Country: None (occurrence: None)
  Receive Date: 20120806
  Receipt Date: 20110930
  Transmission Date: 20120928
  Serious: No
  Sender: FDA-Public Use
  Company Number: US-GLAXOSMITHKLINE-A0946615A

PATIENT
  Age: 57 Year
  Sex: Female

DRUGS (6)
  1. ALBUTEROL [Concomitant]
  2. FLUTICASONE PROPIONATE [Suspect]
     Indication: CHRONIC OBSTRUCTIVE PULMONARY DISEASE
     Dosage: 2PUFF TWICE PER DAY
     Route: 055
     Dates: start: 20110601
  3. HYDROCHLOROTHIAZDE TAB [Concomitant]
  4. FLUTICASONE PROPIONATE [Suspect]
     Dosage: 1PUFF TWICE PER DAY
     Route: 055
  5. NASACORT AQ [Concomitant]
  6. BYSTOLIC [Concomitant]

REACTIONS (9)
  - GINGIVAL PAIN [None]
  - OVERDOSE [None]
  - FUNGAL INFECTION [None]
  - DECREASED APPETITE [None]
  - JOINT SWELLING [None]
  - HEART RATE INCREASED [None]
  - GINGIVAL ERYTHEMA [None]
  - PRODUCT QUALITY ISSUE [None]
  - DIZZINESS [None]
